FAERS Safety Report 6552379-2 (Version None)
Quarter: 2010Q1

REPORT INFORMATION
  Report Type: 
  Country: None (occurrence: None)
  Receive Date: 20100126
  Receipt Date: 20100115
  Transmission Date: 20100710
  Serious: Yes (Death, Other)
  Sender: FDA-Public Use
  Company Number: US-BAXTER-2010BH001209

PATIENT
  Sex: Male

DRUGS (1)
  1. HEPARIN SODIUM INJECTION [Suspect]
     Indication: MYOCARDIAL INFARCTION
     Route: 065
     Dates: start: 20071201, end: 20080101

REACTIONS (6)
  - ANAEMIA [None]
  - DEATH [None]
  - HAEMODYNAMIC INSTABILITY [None]
  - HEPARIN-INDUCED THROMBOCYTOPENIA TEST [None]
  - RENAL FAILURE ACUTE [None]
  - THROMBOCYTOPENIA [None]
